FAERS Safety Report 24550855 (Version 1)
Quarter: 2024Q4

REPORT INFORMATION
  Report Type: Spontaneous
  Country: TR (occurrence: TR)
  Receive Date: 20241025
  Receipt Date: 20241025
  Transmission Date: 20250115
  Serious: Yes (Other)
  Sender: GE HEALTHCARE
  Company Number: TR-GE HEALTHCARE-2024CSU012129

PATIENT
  Age: 56 Year
  Sex: Male
  Weight: 65 kg

DRUGS (3)
  1. CLARISCAN [Suspect]
     Active Substance: GADOTERATE MEGLUMINE
     Indication: Magnetic resonance imaging neck
     Dosage: UNK UNK, TOTAL
     Route: 042
     Dates: start: 20241015, end: 20241015
  2. CLARISCAN [Suspect]
     Active Substance: GADOTERATE MEGLUMINE
     Indication: Magnetic resonance imaging head
  3. CLARISCAN [Suspect]
     Active Substance: GADOTERATE MEGLUMINE
     Indication: Magnetic resonance imaging thoracic

REACTIONS (8)
  - Urinary incontinence [Recovering/Resolving]
  - Dysstasia [Recovering/Resolving]
  - Asthenia [Recovering/Resolving]
  - Insomnia [Recovering/Resolving]
  - Tremor [Recovering/Resolving]
  - Vomiting [Recovering/Resolving]
  - Nausea [Recovering/Resolving]
  - Chills [Recovering/Resolving]

NARRATIVE: CASE EVENT DATE: 20241015
